FAERS Safety Report 11009077 (Version 1)
Quarter: 2015Q2

REPORT INFORMATION
  Report Type: Spontaneous
  Country: US (occurrence: None)
  Receive Date: 20150409
  Receipt Date: 20150409
  Transmission Date: 20150821
  Serious: No
  Sender: FDA-Public Use
  Company Number: None

PATIENT
  Age: 73 Year
  Sex: Female
  Weight: 48.99 kg

DRUGS (4)
  1. ATENOLOL. [Concomitant]
     Active Substance: ATENOLOL
  2. WALFED [Concomitant]
  3. VICKS DAYQUIL [Concomitant]
     Active Substance: DEXTROMETHORPHAN HYDROBROMIDE\GUAIFENESIN
  4. RESTASIS [Suspect]
     Active Substance: CYCLOSPORINE
     Indication: CATARACT OPERATION
     Route: 047
     Dates: start: 20150225, end: 20150408

REACTIONS (3)
  - Decreased activity [None]
  - Malaise [None]
  - Lethargy [None]

NARRATIVE: CASE EVENT DATE: 20150225
